FAERS Safety Report 7503631-5 (Version None)
Quarter: 2011Q1

REPORT INFORMATION
  Report Type: 
  Country: None (occurrence: None)
  Receive Date: 20110324
  Receipt Date: 20100422
  Transmission Date: 20110831
  Serious: Yes (Other)
  Sender: FDA-Public Use
  Company Number: 2010022552

PATIENT
  Sex: Female

DRUGS (3)
  1. RHO(D) IMMUNE GLOBULIN NOS [Suspect]
  2. RHO(D) IMMUNE GLOBULIN NOS [Suspect]
     Indication: RHESUS INCOMPATIBILITY
     Dosage: (ONCE AT 14 WEEKS GESTATION), (ONCE AT 24 WEEKS GESTATION)
     Route: 042
     Dates: start: 20100119
  3. RHO(D) IMMUNE GLOBULIN NOS [Suspect]
     Indication: RHESUS INCOMPATIBILITY
     Dosage: (ONCE AT 14 WEEKS GESTATION), (ONCE AT 24 WEEKS GESTATION)
     Route: 042
     Dates: start: 20100331

REACTIONS (2)
  - DRUG INEFFECTIVE [None]
  - RHESUS ANTIBODIES [None]
